FAERS Safety Report 7626489-2 (Version None)
Quarter: 2011Q3

REPORT INFORMATION
  Report Type: 
  Country: None (occurrence: None)
  Receive Date: 20110721
  Receipt Date: 20110427
  Transmission Date: 20111222
  Serious: No
  Sender: FDA-Public Use
  Company Number: US-NOVEN-11US002371

PATIENT
  Sex: Male

DRUGS (6)
  1. CYMBALTA [Concomitant]
     Indication: PAIN
     Dosage: UNK
     Route: 048
     Dates: start: 20090101
  2. FENTANYL [Suspect]
     Indication: BACK PAIN
     Dosage: Q48 HOURS
     Route: 062
     Dates: start: 20070101
  3. LYRICA [Concomitant]
     Indication: PAIN
     Dosage: UNK
     Route: 048
     Dates: start: 20090101
  4. TYLENOL (CAPLET) [Concomitant]
     Indication: PAIN
     Dosage: UNK
     Route: 048
  5. IBUPROFEN [Concomitant]
     Indication: PAIN
     Dosage: UNK
     Route: 048
  6. CYMBALTA [Concomitant]
     Indication: DEPRESSION

REACTIONS (4)
  - TINNITUS [None]
  - MUSCLE SPASMS [None]
  - INADEQUATE ANALGESIA [None]
  - HEADACHE [None]
